FAERS Safety Report 13630692 (Version 2)
Quarter: 2017Q3

REPORT INFORMATION
  Report Type: Spontaneous
  Country: GB (occurrence: GB)
  Receive Date: 20170608
  Receipt Date: 20170705
  Transmission Date: 20171127
  Serious: Yes (Death, Other)
  Sender: FDA-Public Use
  Company Number: GB-BRISTOL-MYERS SQUIBB COMPANY-BMS-2017-043229

PATIENT
  Age: 73 Year
  Sex: Male
  Weight: 101 kg

DRUGS (1)
  1. KENALOG [Suspect]
     Active Substance: TRIAMCINOLONE ACETONIDE
     Indication: SERONEGATIVE ARTHRITIS
     Dosage: 80 MG, UNK
     Route: 030
     Dates: start: 20170328, end: 20170328

REACTIONS (3)
  - Peritonitis [Fatal]
  - Duodenal perforation [Fatal]
  - Off label use [Unknown]
